FAERS Safety Report 4931961-X (Version None)
Quarter: 2006Q1

REPORT INFORMATION
  Report Type: 
  Country: None (occurrence: None)
  Receive Date: 20060303
  Receipt Date: 20060220
  Transmission Date: 20060701
  Serious: Yes (Hospitalization)
  Sender: FDA-Public Use
  Company Number: US-MERCK-0602USA05115

PATIENT
  Age: 78 Year
  Sex: Female

DRUGS (13)
  1. VIOXX [Suspect]
     Indication: ARTHRITIS
     Route: 048
     Dates: start: 20000501, end: 20030617
  2. VIOXX [Suspect]
     Route: 048
     Dates: start: 20000501, end: 20030617
  3. TOPROL-XL [Concomitant]
     Indication: CARDIAC DISORDER
     Route: 065
     Dates: start: 20020627, end: 20030602
  4. HYZAAR [Concomitant]
     Indication: HYPERTENSION
     Route: 065
     Dates: start: 19980101
  5. CYANOCOBALAMIN [Concomitant]
     Indication: ANAEMIA
     Route: 065
     Dates: start: 20020101
  6. PREDNISONE [Concomitant]
     Indication: POLYMYALGIA RHEUMATICA
     Route: 065
     Dates: start: 19980101
  7. NEURONTIN [Concomitant]
     Indication: HERPES ZOSTER
     Route: 065
     Dates: start: 20030101
  8. FOSAMAX [Concomitant]
     Indication: OSTEOPOROSIS
     Route: 065
     Dates: start: 20030101
  9. ACULAR [Concomitant]
     Indication: HERPES ZOSTER
     Route: 065
     Dates: start: 20030101
  10. LOTEMAX [Concomitant]
     Indication: HERPES ZOSTER
     Route: 065
     Dates: start: 20030101
  11. TYLENOL (CAPLET) [Concomitant]
     Indication: PAIN
     Route: 065
     Dates: start: 19900101
  12. KLOR-CON [Concomitant]
     Indication: HYPOKALAEMIA
     Route: 065
     Dates: start: 20030101
  13. TUMS [Concomitant]
     Indication: DYSPEPSIA
     Route: 065
     Dates: start: 20020101

REACTIONS (2)
  - PAIN IN EXTREMITY [None]
  - THROMBOSIS [None]
